FAERS Safety Report 10593843 (Version 2)
Quarter: 2015Q1

REPORT INFORMATION
  Report Type: Spontaneous
  Country: FR (occurrence: FR)
  Receive Date: 20141119
  Receipt Date: 20150324
  Transmission Date: 20150720
  Serious: Yes (Hospitalization)
  Sender: FDA-Public Use
  Company Number: FR-ABBVIE-14P-056-1309270-00

PATIENT
  Age: 39 Year
  Sex: Male

DRUGS (9)
  1. NORVIR [Suspect]
     Active Substance: RITONAVIR
     Indication: HIV INFECTION
     Route: 048
     Dates: start: 20141017
  2. TRUVADA [Suspect]
     Active Substance: EMTRICITABINE\TENOFOVIR DISOPROXIL FUMARATE
     Indication: HIV INFECTION
     Route: 048
     Dates: start: 20141017
  3. PREZISTA [Suspect]
     Active Substance: DARUNAVIR ETHANOLATE
     Indication: HIV INFECTION
     Route: 048
     Dates: start: 20141017
  4. TRUVADA [Suspect]
     Active Substance: EMTRICITABINE\TENOFOVIR DISOPROXIL FUMARATE
     Route: 065
     Dates: start: 20121119, end: 20130515
  5. BACTRIM [Suspect]
     Active Substance: SULFAMETHOXAZOLE\TRIMETHOPRIM
     Indication: PNEUMOCYSTIS JIROVECII PNEUMONIA
     Route: 048
     Dates: start: 20141012, end: 20141023
  6. BACTRIM [Suspect]
     Active Substance: SULFAMETHOXAZOLE\TRIMETHOPRIM
     Route: 065
     Dates: start: 2012, end: 2012
  7. CORTANCYL [Suspect]
     Active Substance: PREDNISONE
     Indication: PRODUCT USED FOR UNKNOWN INDICATION
     Dosage: 1 DOSAGE FORMS
     Route: 048
     Dates: start: 20141012
  8. PREZISTA [Suspect]
     Active Substance: DARUNAVIR ETHANOLATE
     Route: 065
     Dates: start: 20121119, end: 20130515
  9. NORVIR [Suspect]
     Active Substance: RITONAVIR
     Route: 065
     Dates: start: 20121119, end: 20130515

REACTIONS (3)
  - Burning sensation [Not Recovered/Not Resolved]
  - Rash maculo-papular [Recovered/Resolved]
  - Drug eruption [Unknown]

NARRATIVE: CASE EVENT DATE: 20141023
